FAERS Safety Report 16468863 (Version 2)
Quarter: 2020Q3

REPORT INFORMATION
  Report Type: Spontaneous
  Country: US (occurrence: US)
  Receive Date: 20190624
  Receipt Date: 20200706
  Transmission Date: 20201102
  Serious: No
  Sender: FDA-Public Use
  Company Number: US-PFIZER INC-2019267606

PATIENT
  Age: 3 Year
  Sex: Male

DRUGS (1)
  1. EUCRISA [Suspect]
     Active Substance: CRISABOROLE
     Indication: NEURODERMATITIS
     Dosage: UNK, 2X/DAY(APPLY TO AFFECTED AREA(S) TWICE A DAY (THIN LAYER)

REACTIONS (1)
  - Burning sensation [Unknown]
